FAERS Safety Report 20598340 (Version 1)
Quarter: 2022Q1

REPORT INFORMATION
  Report Type: Spontaneous
  Country: None (occurrence: US)
  Receive Date: 20220315
  Receipt Date: 20220315
  Transmission Date: 20220423
  Serious: Yes (Hospitalization)
  Sender: FDA-Public Use
  Company Number: US-Alva-Amco Pharmacal Companies, Inc.-2126814

PATIENT

DRUGS (1)
  1. DIUREX ULTIMATE [Suspect]
     Active Substance: CAFFEINE
     Indication: Fluid retention
     Route: 048

REACTIONS (1)
  - Hospitalisation [Unknown]

NARRATIVE: CASE EVENT DATE: 20220301
